FAERS Safety Report 24729804 (Version 2)
Quarter: 2024Q4

REPORT INFORMATION
  Report Type: Report from Study
  Country: CA (occurrence: CA)
  Receive Date: 20241213
  Receipt Date: 20241220
  Transmission Date: 20250115
  Serious: Yes (Hospitalization, Other)
  Sender: ALEXION PHARMACEUTICALS
  Company Number: CA-AstraZeneca-2024A175693

PATIENT

DRUGS (5)
  1. ANIFROLUMAB [Suspect]
     Active Substance: ANIFROLUMAB
     Indication: Autoantibody positive
     Dosage: 300 MILLIGRAM, Q4W
     Route: 065
  2. ANIFROLUMAB [Suspect]
     Active Substance: ANIFROLUMAB
     Indication: Systemic lupus erythematosus
     Dosage: 300 MILLIGRAM, Q4W
     Route: 065
  3. ANIFROLUMAB [Suspect]
     Active Substance: ANIFROLUMAB
     Dosage: 300 MILLIGRAM, Q4W
     Route: 065
  4. ANIFROLUMAB [Suspect]
     Active Substance: ANIFROLUMAB
     Dosage: 300 MILLIGRAM, Q4W
     Route: 065
  5. MAGNESIUM [Concomitant]
     Active Substance: MAGNESIUM

REACTIONS (23)
  - Pericardial effusion [Unknown]
  - Pericarditis [Unknown]
  - Drug ineffective [Unknown]
  - Systemic lupus erythematosus [Unknown]
  - Autoimmune haemolytic anaemia [Unknown]
  - Lupus nephritis [Unknown]
  - Arthritis [Unknown]
  - Scleritis [Unknown]
  - Antiphospholipid antibodies negative [Unknown]
  - Butterfly rash [Unknown]
  - Alopecia [Unknown]
  - Photosensitivity reaction [Unknown]
  - Double stranded DNA antibody positive [Unknown]
  - Hypocomplementaemia [Unknown]
  - Night sweats [Unknown]
  - Chest pain [Unknown]
  - Dyspnoea [Unknown]
  - Pyrexia [Unknown]
  - Thrombosis [Unknown]
  - Myopericarditis [Unknown]
  - Myopathy [Unknown]
  - Cardiac valve disease [Unknown]
  - Drug ineffective [Unknown]
